FAERS Safety Report 15993726 (Version 1)
Quarter: 2019Q1

REPORT INFORMATION
  Report Type: Report from Study
  Country: GT (occurrence: GT)
  Receive Date: 20190222
  Receipt Date: 20190222
  Transmission Date: 20190418
  Serious: Yes (Other)
  Sender: FDA-Public Use
  Company Number: GT-SA-2019SA020128

PATIENT
  Age: 54 Year
  Sex: Female

DRUGS (1)
  1. HYDROCHLOROTHIAZIDE/IRBESARTAN [Suspect]
     Active Substance: HYDROCHLOROTHIAZIDE\IRBESARTAN
     Indication: HYPERTENSION
     Dosage: 1 DF(300 MG OF IRBESARTAN + 12.5 MG OF HYDROCHLOROTHIAZIDE), QD
     Route: 048
     Dates: start: 2011

REACTIONS (3)
  - Cerebrovascular accident [Recovered/Resolved with Sequelae]
  - Wheelchair user [Unknown]
  - Unevaluable event [Recovered/Resolved]

NARRATIVE: CASE EVENT DATE: 2013
